FAERS Safety Report 21869211 (Version 1)
Quarter: 2023Q1

REPORT INFORMATION
  Report Type: Spontaneous
  Country: US (occurrence: US)
  Receive Date: 20230117
  Receipt Date: 20230117
  Transmission Date: 20230417
  Serious: No
  Sender: FDA-Public Use
  Company Number: US-JNJFOC-20230116255

PATIENT
  Age: 55 Year
  Sex: Male

DRUGS (1)
  1. SIMPONI [Suspect]
     Active Substance: GOLIMUMAB
     Indication: Product used for unknown indication
     Dosage: OFF THERAPY SINCE SEP-2022 BUT HE HAS RECENTLY STARTED THERAPY UP AGAIN. SIMPONI SMARTJECT 50/0.5ML
     Route: 058

REACTIONS (1)
  - Surgery [Unknown]
